FAERS Safety Report 19098483 (Version 2)
Quarter: 2021Q2

REPORT INFORMATION
  Report Type: Spontaneous
  Country: US (occurrence: US)
  Receive Date: 20210406
  Receipt Date: 20210407
  Transmission Date: 20210717
  Serious: No
  Sender: FDA-Public Use
  Company Number: US-BAYER-2021-116395

PATIENT
  Age: 70 Year
  Sex: Female

DRUGS (3)
  1. CLIMARA PRO [Suspect]
     Active Substance: ESTRADIOL\LEVONORGESTREL
     Indication: HOT FLUSH
  2. CLIMARA PRO [Suspect]
     Active Substance: ESTRADIOL\LEVONORGESTREL
     Indication: BONE DISORDER
  3. CLIMARA PRO [Suspect]
     Active Substance: ESTRADIOL\LEVONORGESTREL
     Indication: HORMONE REPLACEMENT THERAPY
     Dosage: UNK
     Route: 062
     Dates: start: 20210321, end: 20210325

REACTIONS (6)
  - Bone disorder [None]
  - Product adhesion issue [None]
  - Product physical issue [None]
  - Patient dissatisfaction with treatment [None]
  - Drug ineffective [None]
  - Hot flush [None]

NARRATIVE: CASE EVENT DATE: 20210321
